FAERS Safety Report 14229938 (Version 3)
Quarter: 2018Q1

REPORT INFORMATION
  Report Type: Report from Study
  Country: CA (occurrence: CA)
  Receive Date: 20171128
  Receipt Date: 20180110
  Transmission Date: 20180508
  Serious: Yes (Other)
  Sender: FDA-Public Use
  Company Number: CA-AMGEN-CANSP2017176247

PATIENT
  Age: 52 Year
  Sex: Female

DRUGS (2)
  1. ENBREL [Suspect]
     Active Substance: ETANERCEPT
     Indication: PSORIASIS
     Dosage: 50 MG, UNK
     Route: 065
     Dates: start: 20130823
  2. ENBREL [Suspect]
     Active Substance: ETANERCEPT
     Dosage: UNK, EVERY OTHER DAY
     Route: 065

REACTIONS (7)
  - Wound [Unknown]
  - Injection site rash [Unknown]
  - Intentional product misuse [Unknown]
  - Acne [Unknown]
  - Impaired healing [Unknown]
  - Adverse event [Unknown]
  - Drug effect decreased [Unknown]
